FAERS Safety Report 8559787-9 (Version None)
Quarter: 2012Q3

REPORT INFORMATION
  Report Type: 
  Country: None (occurrence: None)
  Receive Date: 20120727
  Receipt Date: 20120727
  Transmission Date: 20120928
  Serious: Yes (Life-Threatening, Hospitalization)
  Sender: FDA-Public Use
  Company Number: None

PATIENT
  Age: 63 Year
  Sex: Male
  Weight: 77.1 kg

DRUGS (1)
  1. CELECOXIB [Suspect]
     Indication: PAIN
     Dosage: 100 MG EVERY DAY PO
     Route: 048
     Dates: start: 20120329, end: 20120709

REACTIONS (1)
  - GASTRIC HAEMORRHAGE [None]
